FAERS Safety Report 7331728-1 (Version None)
Quarter: 2011Q1

REPORT INFORMATION
  Report Type: 
  Country: None (occurrence: None)
  Receive Date: 20110304
  Receipt Date: 20110304
  Transmission Date: 20110831
  Serious: Yes (Death, Hospitalization)
  Sender: FDA-Public Use
  Company Number: PHHO2008IL04543

PATIENT
  Sex: Female
  Weight: 72.5 kg

DRUGS (6)
  1. PLACEBO [Suspect]
     Indication: CARCINOID TUMOUR
     Dosage: PLACEBO
     Dates: start: 20080129
  2. SANDOSTATIN [Concomitant]
     Indication: CARCINOID TUMOUR
     Dosage: UNK
     Dates: end: 20080608
  3. RAD001C [Suspect]
     Indication: CARCINOID TUMOUR
     Dosage: 10 MG, OPEN LABEL
     Route: 048
     Dates: start: 20080512, end: 20080603
  4. SANDOSTATIN [Concomitant]
     Dosage: NO TREATMENT
     Dates: start: 20080609
  5. RAD001C [Suspect]
     Dosage: NO TREATMENT
     Dates: start: 20080609
  6. RAD001C [Suspect]
     Dosage: 5 MG, OPEN LABEL
     Route: 048
     Dates: start: 20080604, end: 20080608

REACTIONS (4)
  - VOMITING [None]
  - INTESTINAL OBSTRUCTION [None]
  - NEOPLASM MALIGNANT [None]
  - ABDOMINAL PAIN [None]
